FAERS Safety Report 6108629-X (Version None)
Quarter: 2009Q1

REPORT INFORMATION
  Report Type: 
  Country: None (occurrence: None)
  Receive Date: 20090305
  Receipt Date: 20090218
  Transmission Date: 20090719
  Serious: Yes (Hospitalization)
  Sender: FDA-Public Use
  Company Number: 2009S1002880

PATIENT
  Age: 65 Year
  Sex: Male

DRUGS (10)
  1. VALPROATE SODIUM [Suspect]
     Indication: CONVULSION
     Dosage: 300 MG; UNKNOWN; ORAL; TWICE A DAY
     Route: 048
     Dates: start: 20081231, end: 20090101
  2. ASPIRIN [Concomitant]
  3. DIHYDROCODEINE COMPOUND [Concomitant]
  4. FUROSEMIDE [Concomitant]
  5. GLYCERYL TRINITRATE (GLYCERYL TRINITRATE) [Concomitant]
  6. LISINOPRIL [Concomitant]
  7. METOPROLOL TARTRATE [Concomitant]
  8. PARACETAMOL (PARACETAMOL) [Concomitant]
  9. SETRALINE (SETRALINE) [Concomitant]
  10. SPIRONOLACTONE [Concomitant]

REACTIONS (5)
  - BLOOD SODIUM ABNORMAL [None]
  - DYSPNOEA [None]
  - EFFUSION [None]
  - INSOMNIA [None]
  - URINE OUTPUT DECREASED [None]
